FAERS Safety Report 13710253 (Version 1)
Quarter: 2017Q2

REPORT INFORMATION
  Report Type: Spontaneous
  Country: US (occurrence: US)
  Receive Date: 20170630
  Receipt Date: 20170630
  Transmission Date: 20170830
  Serious: No
  Sender: FDA-Public Use
  Company Number: None

PATIENT
  Age: 69 Year
  Sex: Female

DRUGS (1)
  1. FORTEO [Suspect]
     Active Substance: TERIPARATIDE

REACTIONS (5)
  - Fatigue [None]
  - Viral upper respiratory tract infection [None]
  - Nervousness [None]
  - Dizziness [None]
  - Feeling abnormal [None]

NARRATIVE: CASE EVENT DATE: 20170630
